FAERS Safety Report 9965126 (Version 1)
Quarter: 2014Q1

REPORT INFORMATION
  Report Type: Report from Study
  Country: US (occurrence: US)
  Receive Date: 20140305
  Receipt Date: 20140305
  Transmission Date: 20141002
  Serious: Yes (Hospitalization)
  Sender: FDA-Public Use
  Company Number: US-ABBVIE-13P-163-1124149-00

PATIENT
  Sex: Male
  Weight: 114.41 kg

DRUGS (7)
  1. HUMIRA [Suspect]
     Indication: COLITIS ULCERATIVE
     Dates: start: 201201, end: 201301
  2. HUMIRA [Suspect]
     Dates: start: 201302, end: 201307
  3. NOVOLOG [Concomitant]
     Indication: DIABETES MELLITUS
  4. LANTUS [Concomitant]
     Indication: DIABETES MELLITUS
  5. ASACOL [Concomitant]
     Indication: COLITIS ULCERATIVE
  6. ROWASA [Concomitant]
     Indication: COLITIS ULCERATIVE
  7. SYNTHROID [Concomitant]
     Indication: HYPOTHYROIDISM

REACTIONS (1)
  - Drug ineffective [Recovered/Resolved]
